FAERS Safety Report 23126488 (Version 3)
Quarter: 2023Q4

REPORT INFORMATION
  Report Type: Spontaneous
  Country: MT (occurrence: MT)
  Receive Date: 20231030
  Receipt Date: 20231120
  Transmission Date: 20240109
  Serious: Yes (Death, Other)
  Sender: FDA-Public Use
  Company Number: MT-GILEAD-2023-0649201

PATIENT
  Sex: Female
  Weight: 92 kg

DRUGS (6)
  1. TRODELVY [Suspect]
     Active Substance: SACITUZUMAB GOVITECAN-HZIY
     Indication: Invasive ductal breast carcinoma
     Dosage: 200 MG
     Route: 065
     Dates: start: 20221223, end: 20230801
  2. MORPHINE SULFATE [Concomitant]
     Active Substance: MORPHINE SULFATE
  3. ESOMEPRAZOLE [Concomitant]
     Active Substance: ESOMEPRAZOLE
  4. PAROXETINE [Concomitant]
     Active Substance: PAROXETINE
  5. CYCLIZINE [Concomitant]
     Active Substance: CYCLIZINE
  6. ONDANSETRON [Concomitant]
     Active Substance: ONDANSETRON

REACTIONS (4)
  - Ascites [Unknown]
  - Disease progression [Fatal]
  - Metastases to liver [Unknown]
  - Drug ineffective [Fatal]

NARRATIVE: CASE EVENT DATE: 20230830
